FAERS Safety Report 9313270 (Version 1)
Quarter: 2013Q2

REPORT INFORMATION
  Report Type: Report from Study
  Country: US (occurrence: US)
  Receive Date: 20130528
  Receipt Date: 20130528
  Transmission Date: 20140414
  Serious: No
  Sender: FDA-Public Use
  Company Number: US-ABBOTT-13P-163-1084216-00

PATIENT
  Age: 65 Year
  Sex: Male

DRUGS (2)
  1. ANDROGEL [Suspect]
     Indication: BLOOD TESTOSTERONE DECREASED
     Dosage: 1 PUMP
     Route: 061
     Dates: start: 201302
  2. NOVOLOG [Concomitant]
     Indication: DIABETES MELLITUS

REACTIONS (1)
  - Alopecia [Not Recovered/Not Resolved]
